FAERS Safety Report 7051971-9 (Version None)
Quarter: 2010Q4

REPORT INFORMATION
  Report Type: 
  Country: None (occurrence: None)
  Receive Date: 20101019
  Receipt Date: 20101012
  Transmission Date: 20110411
  Serious: Yes (Hospitalization)
  Sender: FDA-Public Use
  Company Number: A0775449A

PATIENT
  Age: 70 Year
  Sex: Female

DRUGS (1)
  1. AVANDIA [Suspect]
     Dosage: 8MG PER DAY
     Route: 048
     Dates: end: 20060101

REACTIONS (4)
  - CARDIAC FAILURE CONGESTIVE [None]
  - FRACTURE [None]
  - HEART VALVE OPERATION [None]
  - MYOCARDIAL INFARCTION [None]
